FAERS Safety Report 6250124-1 (Version None)
Quarter: 2009Q2

REPORT INFORMATION
  Report Type: 
  Country: None (occurrence: None)
  Receive Date: 20090626
  Receipt Date: 20090612
  Transmission Date: 20091009
  Serious: Yes (Other)
  Sender: FDA-Public Use
  Company Number: 2009-197170-NL

PATIENT
  Age: 35 Year
  Sex: Female

DRUGS (3)
  1. PUREGON [Suspect]
     Dosage: 75 IU DAILY SUBCUTANEOUS
     Route: 058
     Dates: start: 20090406, end: 20090424
  2. PUREGON [Suspect]
     Dosage: 100 IU DAILY SUBCUTANEOUS
     Route: 058
     Dates: start: 20090509, end: 20090520
  3. PUREGON [Suspect]
     Dosage: 116 IU DAILY SUBCUTANEOUS
     Route: 058
     Dates: start: 20090521, end: 20090527

REACTIONS (3)
  - JOINT SWELLING [None]
  - OEDEMA PERIPHERAL [None]
  - PAIN IN EXTREMITY [None]
